FAERS Safety Report 24854296 (Version 1)
Quarter: 2025Q1

REPORT INFORMATION
  Report Type: Spontaneous
  Country: DE (occurrence: DE)
  Receive Date: 20250117
  Receipt Date: 20250117
  Transmission Date: 20250408
  Serious: Yes (Other)
  Sender: SUNOVION
  Company Number: DE-RICHTER-2025-GR-000279

PATIENT

DRUGS (1)
  1. ESTRADIOL\NORETHINDRONE ACETATE\RELUGOLIX [Suspect]
     Active Substance: ESTRADIOL\NORETHINDRONE ACETATE\RELUGOLIX
     Indication: Uterine leiomyoma
     Dosage: 1 TABLET PER DAY
     Route: 048
     Dates: start: 202406, end: 202412

REACTIONS (6)
  - Pain [Unknown]
  - Palpitations [Unknown]
  - Hypertension [Unknown]
  - Limb discomfort [Unknown]
  - Hyperhidrosis [Unknown]
  - Heavy menstrual bleeding [Unknown]

NARRATIVE: CASE EVENT DATE: 20241101
